FAERS Safety Report 6257420-2 (Version None)
Quarter: 2009Q3

REPORT INFORMATION
  Report Type: 
  Country: None (occurrence: None)
  Receive Date: 20090706
  Receipt Date: 20090625
  Transmission Date: 20100115
  Serious: Yes (Hospitalization)
  Sender: FDA-Public Use
  Company Number: US-MERCK-0710USA04720

PATIENT
  Age: 60 Year
  Sex: Female

DRUGS (6)
  1. FOSAMAX [Suspect]
     Indication: ARTHRITIS
     Route: 048
     Dates: start: 19980101
  2. FOSAMAX [Suspect]
     Route: 048
     Dates: start: 20070701
  3. FOSAMAX [Suspect]
     Indication: OSTEOPOROSIS
     Route: 048
     Dates: start: 19980101
  4. FOSAMAX [Suspect]
     Route: 048
     Dates: start: 20070701
  5. FOSAMAX PLUS D [Suspect]
     Indication: ARTHRITIS
     Route: 048
     Dates: start: 20060501, end: 20070301
  6. FOSAMAX PLUS D [Suspect]
     Indication: OSTEOPOROSIS
     Route: 048
     Dates: start: 20060501, end: 20070301

REACTIONS (25)
  - ANXIETY [None]
  - BACK DISORDER [None]
  - BILIARY CYST [None]
  - CELLULITIS [None]
  - DEPRESSION [None]
  - DERMATITIS CONTACT [None]
  - DIABETES MELLITUS [None]
  - DYSPHAGIA [None]
  - GASTROOESOPHAGEAL REFLUX DISEASE [None]
  - GOITRE [None]
  - HYPERCALCAEMIA [None]
  - HYPERPARATHYROIDISM PRIMARY [None]
  - HYPERTENSION [None]
  - INSOMNIA [None]
  - LYMPHADENOPATHY [None]
  - NEPHROLITHIASIS [None]
  - NERVE COMPRESSION [None]
  - PAIN IN JAW [None]
  - PARATHYROID TUMOUR BENIGN [None]
  - RASH [None]
  - RENAL DISORDER [None]
  - RENAL STONE REMOVAL [None]
  - RESTRICTIVE PULMONARY DISEASE [None]
  - THYROID DISORDER [None]
  - URINARY TRACT INFECTION [None]
